FAERS Safety Report 7714824-6 (Version None)
Quarter: 2011Q3

REPORT INFORMATION
  Report Type: 
  Country: None (occurrence: None)
  Receive Date: 20110829
  Receipt Date: 20110819
  Transmission Date: 20111222
  Serious: Yes (Hospitalization)
  Sender: FDA-Public Use
  Company Number: AT-ASTELLAS-2011US005239

PATIENT
  Sex: Female

DRUGS (3)
  1. MARCOUMAR [Concomitant]
     Indication: PRODUCT USED FOR UNKNOWN INDICATION
     Dosage: UNK
     Route: 065
     Dates: start: 20090501
  2. TARCEVA [Suspect]
     Indication: BRONCHIAL DISORDER
     Dosage: 150 MG, UID/QD
     Route: 048
     Dates: start: 20091201
  3. ZOMETA [Concomitant]
     Indication: PRODUCT USED FOR UNKNOWN INDICATION
     Dosage: UNK
     Route: 065
     Dates: start: 20090601

REACTIONS (1)
  - SCIATICA [None]
